FAERS Safety Report 17655592 (Version 1)
Quarter: 2020Q2

REPORT INFORMATION
  Report Type: Spontaneous
  Country: US (occurrence: US)
  Receive Date: 20200409
  Receipt Date: 20200409
  Transmission Date: 20200713
  Serious: No
  Sender: FDA-Public Use
  Company Number: None

PATIENT
  Age: 36 Year
  Sex: Female

DRUGS (4)
  1. CHLORTHALIDONE. [Concomitant]
     Active Substance: CHLORTHALIDONE
  2. LOSARTAN. [Concomitant]
     Active Substance: LOSARTAN
  3. CENTRUM WOMEN IRON [Concomitant]
  4. LI DA DAIDAIHUA WEIGHT LOSS CAPSUL [Suspect]
     Active Substance: DIETARY SUPPLEMENT\HERBALS
     Indication: WEIGHT CONTROL
     Dates: start: 20191118, end: 20191130

REACTIONS (1)
  - Headache [None]

NARRATIVE: CASE EVENT DATE: 20191118
